FAERS Safety Report 5577798-2 (Version None)
Quarter: 2007Q4

REPORT INFORMATION
  Report Type: 
  Country: None (occurrence: None)
  Receive Date: 20071231
  Receipt Date: 20071221
  Transmission Date: 20080405
  Serious: Yes (Other)
  Sender: FDA-Public Use
  Company Number: PHBS2007JP20827

PATIENT
  Age: 44 Year
  Sex: Female

DRUGS (1)
  1. VOLTAREN [Suspect]
     Indication: ANAL FISSURE
     Route: 054
     Dates: start: 20050101, end: 20050109

REACTIONS (1)
  - ANAL ULCER [None]
